FAERS Safety Report 16609386 (Version 1)
Quarter: 2019Q3

REPORT INFORMATION
  Report Type: Spontaneous
  Country: US (occurrence: US)
  Receive Date: 20190721
  Receipt Date: 20190721
  Transmission Date: 20191004
  Serious: Yes (Disabling)
  Sender: FDA-Public Use
  Company Number: None

PATIENT
  Age: 43 Year
  Sex: Female
  Weight: 18 kg

DRUGS (3)
  1. CVS NIGHTTIME DRY-EYE RELIEF [Suspect]
     Active Substance: MINERAL OIL\PETROLATUM
     Indication: DRY EYE
     Route: 047
     Dates: start: 20190622, end: 20190710
  2. EYE DROPS [Concomitant]
     Active Substance: UNSPECIFIED INGREDIENT
  3. SYSTANE EYE OINTMENT [Concomitant]

REACTIONS (12)
  - Eye infection [None]
  - Eye pain [None]
  - Blindness [None]
  - Dry eye [None]
  - Herpes ophthalmic [None]
  - Recalled product administered [None]
  - Headache [None]
  - Corneal scar [None]
  - Eye injury [None]
  - Keratitis [None]
  - Vomiting [None]
  - Immunosuppression [None]

NARRATIVE: CASE EVENT DATE: 20190710
